FAERS Safety Report 9405315 (Version 1)
Quarter: 2013Q3

REPORT INFORMATION
  Report Type: Report from Study
  Country: IE (occurrence: IE)
  Receive Date: 20130717
  Receipt Date: 20130717
  Transmission Date: 20140515
  Serious: Yes (Hospitalization, Other)
  Sender: FDA-Public Use
  Company Number: IE-ABBOTT-13P-229-1075971-00

PATIENT
  Age: 72 Year
  Sex: Male

DRUGS (6)
  1. HUMIRA [Suspect]
     Indication: CROHN^S DISEASE
     Dosage: ONCE
     Route: 058
     Dates: start: 20120221, end: 20120221
  2. HUMIRA [Suspect]
     Dosage: ONCE
     Route: 058
  3. HUMIRA [Suspect]
     Route: 058
     Dates: start: 2012, end: 2013
  4. POTHYRANINE [Concomitant]
     Indication: PRODUCT USED FOR UNKNOWN INDICATION
  5. ENTOCORT [Concomitant]
     Indication: PRODUCT USED FOR UNKNOWN INDICATION
  6. OMEPRAZOLE [Concomitant]
     Indication: PRODUCT USED FOR UNKNOWN INDICATION

REACTIONS (2)
  - Neuroendocrine tumour [Recovered/Resolved with Sequelae]
  - Drug ineffective [Unknown]
